FAERS Safety Report 8048366-8 (Version None)
Quarter: 2012Q1

REPORT INFORMATION
  Report Type: 
  Country: None (occurrence: None)
  Receive Date: 20120117
  Receipt Date: 20120109
  Transmission Date: 20120608
  Serious: Yes (Other)
  Sender: FDA-Public Use
  Company Number: ES-SANOFI-AVENTIS-2011SA084069

PATIENT
  Age: 30 Year
  Sex: Female

DRUGS (2)
  1. SOLOSTAR [Suspect]
     Indication: DEVICE THERAPY
     Dates: start: 20110101, end: 20111217
  2. APIDRA SOLOSTAR [Suspect]
     Dosage: DOSE: 5-6-7: BEFORE BREAKFAST, LUNCH AND DINNER RESPECTIVELY.
     Route: 065
     Dates: start: 20110101, end: 20111217

REACTIONS (13)
  - MUSCLE SPASMS [None]
  - INAPPROPRIATE AFFECT [None]
  - CHEST DISCOMFORT [None]
  - FEELING ABNORMAL [None]
  - ABDOMINAL DISCOMFORT [None]
  - NAUSEA [None]
  - MONOPLEGIA [None]
  - DEPRESSED LEVEL OF CONSCIOUSNESS [None]
  - ALTERED STATE OF CONSCIOUSNESS [None]
  - DIZZINESS [None]
  - SYNCOPE [None]
  - ASTHENIA [None]
  - DYSPNOEA [None]
